FAERS Safety Report 8521252-2 (Version None)
Quarter: 2012Q3

REPORT INFORMATION
  Report Type: 
  Country: None (occurrence: None)
  Receive Date: 20120712
  Receipt Date: 20120712
  Transmission Date: 20120928
  Serious: Yes (Disabling)
  Sender: FDA-Public Use
  Company Number: None

PATIENT
  Sex: Female
  Weight: 15.4223 kg

DRUGS (1)
  1. LEVOFLOXACIN [Suspect]
     Indication: URINARY TRACT INFECTION
     Dosage: 20 ML ONCE EVERY 24 HOUR PO  ONE DOSE
     Route: 048
     Dates: start: 20120525, end: 20120525

REACTIONS (5)
  - TENDONITIS [None]
  - HALLUCINATION [None]
  - HYPOAESTHESIA [None]
  - PAIN IN EXTREMITY [None]
  - ARTHRALGIA [None]
